FAERS Safety Report 5587197-5 (Version None)
Quarter: 2008Q1

REPORT INFORMATION
  Report Type: 
  Country: None (occurrence: None)
  Receive Date: 20080110
  Receipt Date: 20070108
  Transmission Date: 20080703
  Serious: Yes (Hospitalization)
  Sender: FDA-Public Use
  Company Number: US-BRISTOL-MYERS SQUIBB COMPANY-13635594

PATIENT
  Age: 69 Year
  Sex: Male
  Weight: 85 kg

DRUGS (8)
  1. CARDIOLITE [Suspect]
     Indication: CARDIAC STRESS TEST
     Dosage: RECV 10.4 MILLICURIE @ 7:28AM AND 31.1 MILLICURIE @ 8:30AM LOT #S 06363191 AND 06363104
     Dates: start: 20061229
  2. NIACIN [Concomitant]
  3. LIDOCAINE [Concomitant]
  4. VITAMIN E [Concomitant]
  5. AMITRIPTYLINE HCL [Concomitant]
  6. FLOMAX [Concomitant]
  7. PREVACID [Concomitant]
  8. METHADONE HCL [Concomitant]

REACTIONS (2)
  - FLUSHING [None]
  - RASH [None]
